FAERS Safety Report 7329120-9 (Version None)
Quarter: 2011Q1

REPORT INFORMATION
  Report Type: 
  Country: None (occurrence: None)
  Receive Date: 20110303
  Receipt Date: 20110225
  Transmission Date: 20110831
  Serious: Yes (Other)
  Sender: FDA-Public Use
  Company Number: GB-TEVA-268088ISR

PATIENT
  Age: 55 Year
  Sex: Female

DRUGS (2)
  1. CARBOPLATIN [Suspect]
     Indication: OVARIAN CANCER
     Dates: start: 20101104
  2. PACLITAXEL [Suspect]
     Indication: OVARIAN CANCER
     Dates: start: 20101104

REACTIONS (1)
  - ARTERIAL THROMBOSIS [None]
